FAERS Safety Report 18167563 (Version 1)
Quarter: 2020Q3

REPORT INFORMATION
  Report Type: Spontaneous
  Country: CA (occurrence: CA)
  Receive Date: 20200819
  Receipt Date: 20200819
  Transmission Date: 20201103
  Serious: Yes (Other)
  Sender: FDA-Public Use
  Company Number: CA-AUROBINDO-AUR-APL-2020-039323

PATIENT
  Age: 61 Year
  Sex: Female

DRUGS (3)
  1. TOPIRAMATE. [Suspect]
     Active Substance: TOPIRAMATE
     Indication: MIGRAINE
     Dosage: UNK
     Route: 065
  2. AIMOVIG [Suspect]
     Active Substance: ERENUMAB-AOOE
     Indication: MIGRAINE PROPHYLAXIS
     Dosage: 140 MILLIGRAM
     Route: 058
  3. ZOMIG [Concomitant]
     Active Substance: ZOLMITRIPTAN
     Indication: MIGRAINE PROPHYLAXIS
     Dosage: UNK
     Route: 065

REACTIONS (6)
  - Dry skin [Recovered/Resolved]
  - Fatigue [Recovered/Resolved]
  - Cataract [Recovered/Resolved]
  - Migraine [Recovered/Resolved]
  - Cellulitis [Recovered/Resolved]
  - Pruritus [Recovered/Resolved]
